FAERS Safety Report 15232959 (Version 3)
Quarter: 2018Q3

REPORT INFORMATION
  Report Type: Spontaneous
  Country: US (occurrence: US)
  Receive Date: 20180802
  Receipt Date: 20180827
  Transmission Date: 20181010
  Serious: No
  Sender: FDA-Public Use
  Company Number: US-PFIZER INC-2018309564

PATIENT
  Age: 7 Year
  Sex: Female
  Weight: 21.77 kg

DRUGS (3)
  1. GENOTROPIN MQ [Suspect]
     Active Substance: SOMATROPIN
     Dosage: 0.8 MG, DAILY
     Dates: start: 20110317
  2. GENOTROPIN MQ [Suspect]
     Active Substance: SOMATROPIN
     Dosage: 0.6 MG, UNK
     Dates: start: 201103, end: 20180808
  3. GENOTROPIN MQ [Suspect]
     Active Substance: SOMATROPIN
     Indication: PRADER-WILLI SYNDROME
     Dosage: 0.8 MG, DAILY
     Dates: start: 20110321

REACTIONS (3)
  - Blood creatinine decreased [Unknown]
  - Drug dose omission [Unknown]
  - Intentional product use issue [Unknown]

NARRATIVE: CASE EVENT DATE: 201806
